FAERS Safety Report 5816941-4 (Version None)
Quarter: 2008Q3

REPORT INFORMATION
  Report Type: 
  Country: None (occurrence: None)
  Receive Date: 20080722
  Receipt Date: 20080714
  Transmission Date: 20090109
  Serious: Yes (Other)
  Sender: FDA-Public Use
  Company Number: PHHY2008DE11459

PATIENT
  Age: 51 Year
  Sex: Female

DRUGS (6)
  1. MERICOMB [Suspect]
     Dosage: 4 MG, UNK
     Dates: start: 20080603
  2. ESCITALOPRAM [Suspect]
     Dosage: UNK
     Dates: start: 20080603
  3. MIRTAZAPINE [Suspect]
     Dosage: UNK
     Dates: start: 20080603
  4. QUETIAPINE FUMARATE [Suspect]
     Dosage: UNK
     Dates: start: 20080603
  5. LORAZEPAM [Suspect]
     Dosage: UNK
     Dates: start: 20080603
  6. METOCLOPRAMIDE [Suspect]
     Dosage: UNK
     Dates: start: 20080603

REACTIONS (4)
  - DIZZINESS [None]
  - FATIGUE [None]
  - INTENTIONAL OVERDOSE [None]
  - SUICIDE ATTEMPT [None]
